FAERS Safety Report 6072545-2 (Version None)
Quarter: 2009Q1

REPORT INFORMATION
  Report Type: 
  Country: None (occurrence: None)
  Receive Date: 20090210
  Receipt Date: 20090203
  Transmission Date: 20090719
  Serious: Yes (Hospitalization)
  Sender: FDA-Public Use
  Company Number: US-AVENTIS-200910910US

PATIENT
  Sex: Female

DRUGS (3)
  1. LANTUS [Suspect]
     Dosage: DOSE: UNK
     Route: 058
  2. DRUG USED IN DIABETES [Concomitant]
     Dosage: DOSE: UNK
     Route: 048
  3. BYETTA [Concomitant]
     Dosage: DOSE: UNK

REACTIONS (2)
  - DIABETIC COMPLICATION [None]
  - GLYCOSYLATED HAEMOGLOBIN INCREASED [None]
